FAERS Safety Report 16176740 (Version 7)
Quarter: 2019Q3

REPORT INFORMATION
  Report Type: Report from Study
  Country: KR (occurrence: KR)
  Receive Date: 20190409
  Receipt Date: 20190807
  Transmission Date: 20191004
  Serious: Yes (Hospitalization)
  Sender: FDA-Public Use
  Company Number: KR-009507513-1903KOR005673

PATIENT
  Sex: Female

DRUGS (17)
  1. PEMBROLIZUMAB. [Suspect]
     Active Substance: PEMBROLIZUMAB
     Dosage: 200 MG, EVERY 3 WEEKS
     Dates: start: 20190304, end: 20190304
  2. PEMBROLIZUMAB. [Suspect]
     Active Substance: PEMBROLIZUMAB
     Dosage: QUANTITY 2, DAYS 1
     Dates: start: 20190625, end: 20190625
  3. EMEND (FOSAPREPITANT DIMEGLUMINE) [Suspect]
     Active Substance: FOSAPREPITANT DIMEGLUMINE
     Dosage: CONCENTRATION: 150 MG; QUANTITY 1
     Route: 042
     Dates: start: 20190330, end: 20190330
  4. PEMBROLIZUMAB. [Suspect]
     Active Substance: PEMBROLIZUMAB
     Dosage: QUANTITY 2, DAYS 1
     Dates: start: 20190513, end: 20190513
  5. EMEND (FOSAPREPITANT DIMEGLUMINE) [Suspect]
     Active Substance: FOSAPREPITANT DIMEGLUMINE
     Dosage: QUANTITY 1
     Route: 042
     Dates: start: 20190513, end: 20190513
  6. PEMBROLIZUMAB. [Suspect]
     Active Substance: PEMBROLIZUMAB
     Dosage: 200 MG, EVERY 3 WEEKS
     Dates: start: 20181026, end: 20181026
  7. PEMBROLIZUMAB. [Suspect]
     Active Substance: PEMBROLIZUMAB
     Dosage: 200 MG, EVERY 3 WEEKS
     Dates: start: 20190401, end: 20190401
  8. EMEND (FOSAPREPITANT DIMEGLUMINE) [Suspect]
     Active Substance: FOSAPREPITANT DIMEGLUMINE
     Dosage: QUANTITY 1, DAYS 1
     Route: 042
     Dates: start: 20190625, end: 20190625
  9. PEMBROLIZUMAB. [Suspect]
     Active Substance: PEMBROLIZUMAB
     Indication: METASTASES TO LIVER
     Dosage: 200 MG, EVERY 3 WEEKS
     Dates: start: 20180914, end: 20180914
  10. PEMBROLIZUMAB. [Suspect]
     Active Substance: PEMBROLIZUMAB
     Dosage: 200 MG, EVERY 3 WEEKS
     Dates: start: 20181207, end: 20181207
  11. PEMBROLIZUMAB. [Suspect]
     Active Substance: PEMBROLIZUMAB
     Dosage: UNK
  12. PEMBROLIZUMAB. [Suspect]
     Active Substance: PEMBROLIZUMAB
     Dosage: CONCENTRATION: 100MG/4ML; QUANTITY 2, DAYS 1
     Dates: start: 20190530, end: 20190530
  13. PEMBROLIZUMAB. [Suspect]
     Active Substance: PEMBROLIZUMAB
     Dosage: QUANTITY 2, DAYS 1
     Dates: start: 20190719, end: 20190719
  14. PEMBROLIZUMAB. [Suspect]
     Active Substance: PEMBROLIZUMAB
     Indication: MALIGNANT NEOPLASM OF THYMUS
     Dosage: 200 MG, EVERY 3 WEEKS
     Dates: start: 20180824, end: 20180824
  15. PEMBROLIZUMAB. [Suspect]
     Active Substance: PEMBROLIZUMAB
     Dosage: 200 MG, EVERY 3 WEEKS
     Dates: start: 20181005, end: 20181005
  16. PEMBROLIZUMAB. [Suspect]
     Active Substance: PEMBROLIZUMAB
     Dosage: 200 MG, EVERY 3 WEEKS
     Dates: start: 20181116, end: 20181116
  17. EMEND (FOSAPREPITANT DIMEGLUMINE) [Suspect]
     Active Substance: FOSAPREPITANT DIMEGLUMINE
     Dosage: CONCENTRATION: 150ML/BTL; QUANTITY 1
     Route: 042
     Dates: start: 20190530, end: 20190530

REACTIONS (10)
  - Transfusion [Unknown]
  - Transfusion [Unknown]
  - Transfusion [Unknown]
  - Adverse event [Unknown]
  - Inappropriate schedule of product administration [Unknown]
  - Platelet transfusion [Unknown]
  - Adverse event [Unknown]
  - Platelet transfusion [Unknown]
  - Transfusion [Unknown]
  - Product use in unapproved indication [Unknown]

NARRATIVE: CASE EVENT DATE: 20180824
